FAERS Safety Report 18382617 (Version 1)
Quarter: 2020Q4

REPORT INFORMATION
  Report Type: Spontaneous
  Country: US (occurrence: US)
  Receive Date: 20201013
  Receipt Date: 20201013
  Transmission Date: 20210114
  Serious: No
  Sender: FDA-Public Use
  Company Number: None

PATIENT
  Age: 73 Year
  Sex: Female

DRUGS (18)
  1. MULTIVITAMIN [Concomitant]
     Active Substance: VITAMINS
  2. NEXIUM [Concomitant]
     Active Substance: ESOMEPRAZOLE MAGNESIUM
  3. BENAZEPRIL [Concomitant]
     Active Substance: BENAZEPRIL HYDROCHLORIDE
  4. COLCHICINE. [Concomitant]
     Active Substance: COLCHICINE
  5. REPATHA [Suspect]
     Active Substance: EVOLOCUMAB
     Indication: HYPERLIPIDAEMIA
     Dosage: ?          OTHER FREQUENCY:Q 2 WEEKS ;?
     Route: 058
     Dates: start: 20191220
  6. FLUOXETINE HCL [Concomitant]
     Active Substance: FLUOXETINE HYDROCHLORIDE
  7. PLAVIX [Concomitant]
     Active Substance: CLOPIDOGREL BISULFATE
  8. AMLODIPINE BESYLATE. [Concomitant]
     Active Substance: AMLODIPINE BESYLATE
  9. BUMETANIDE. [Concomitant]
     Active Substance: BUMETANIDE
  10. ALLOPURINOL. [Concomitant]
     Active Substance: ALLOPURINOL
  11. EFFIENT [Concomitant]
     Active Substance: PRASUGREL HYDROCHLORIDE
  12. BABY ASPIRIN [Concomitant]
     Active Substance: ASPIRIN
  13. MAGNESIUM [Concomitant]
     Active Substance: MAGNESIUM
  14. BUSPIRONE HCL [Concomitant]
     Active Substance: BUSPIRONE HYDROCHLORIDE
  15. NAPROXEN. [Concomitant]
     Active Substance: NAPROXEN
  16. CARVEDILOL. [Concomitant]
     Active Substance: CARVEDILOL
  17. TYLENOL [Concomitant]
     Active Substance: ACETAMINOPHEN
  18. ISOSORBIDE MONONITRATE ER [Concomitant]
     Active Substance: ISOSORBIDE MONONITRATE

REACTIONS (2)
  - Coronary artery disease [None]
  - Chronic kidney disease [None]

NARRATIVE: CASE EVENT DATE: 20201008
